FAERS Safety Report 6551308-5 (Version None)
Quarter: 2010Q1

REPORT INFORMATION
  Report Type: 
  Country: None (occurrence: None)
  Receive Date: 20100120
  Receipt Date: 20100105
  Transmission Date: 20100710
  Serious: Yes (Hospitalization, Congenital Anomaly, Other)
  Sender: FDA-Public Use
  Company Number: AUR-APL-2010-00032

PATIENT

DRUGS (2)
  1. CITALOPRAM HYDROBROMIDE [Suspect]
     Indication: DEPRESSION
     Dosage: 20MG, TRANSPLACENT
     Route: 064
     Dates: start: 20080903, end: 20091207
  2. PARACETAMOL [Concomitant]

REACTIONS (2)
  - EXOMPHALOS [None]
  - MATERNAL DRUGS AFFECTING FOETUS [None]
